FAERS Safety Report 12762140 (Version 2)
Quarter: 2016Q4

REPORT INFORMATION
  Report Type: Report from Study
  Country: IL (occurrence: IL)
  Receive Date: 20160920
  Receipt Date: 20161007
  Transmission Date: 20170207
  Serious: Yes (Other)
  Sender: FDA-Public Use
  Company Number: IL-TEVA-692092ACC

PATIENT
  Sex: Female

DRUGS (6)
  1. NORMALOL [Concomitant]
     Active Substance: ATENOLOL
  2. LITORVA [Concomitant]
     Active Substance: ATORVASTATIN CALCIUM
  3. SEROXAT [Concomitant]
     Active Substance: PAROXETINE HYDROCHLORIDE
  4. COPAXONE [Suspect]
     Active Substance: GLATIRAMER ACETATE
     Dosage: 20MG/ML
     Route: 058
     Dates: start: 20011014, end: 20150325
  5. TRITACE [Concomitant]
     Active Substance: RAMIPRIL
  6. COPAXONE [Suspect]
     Active Substance: GLATIRAMER ACETATE
     Indication: MULTIPLE SCLEROSIS
     Dosage: 20 MILLIGRAM/MILLILITERS DAILY; 20MG/ML
     Route: 058
     Dates: start: 20150325

REACTIONS (2)
  - Injection site scar [Not Recovered/Not Resolved]
  - Injection site abscess [Recovered/Resolved with Sequelae]

NARRATIVE: CASE EVENT DATE: 2013
